FAERS Safety Report 10429379 (Version 1)
Quarter: 2014Q3

REPORT INFORMATION
  Report Type: Spontaneous
  Country: US (occurrence: None)
  Receive Date: 20140902
  Receipt Date: 20140902
  Transmission Date: 20150326
  Serious: Yes (Other)
  Sender: FDA-Public Use
  Company Number: None

PATIENT
  Age: 61 Year
  Sex: Female

DRUGS (1)
  1. ENBREL [Suspect]
     Active Substance: ETANERCEPT
     Indication: PSORIASIS
     Dosage: 25 MG TWICE WEEKLY SUBQ
     Route: 058

REACTIONS (3)
  - Thyroid cyst [None]
  - Uterine mass [None]
  - Fear [None]

NARRATIVE: CASE EVENT DATE: 20140825
